FAERS Safety Report 16004941 (Version 2)
Quarter: 2023Q2

REPORT INFORMATION
  Report Type: Spontaneous
  Country: US (occurrence: US)
  Receive Date: 20190226
  Receipt Date: 20230609
  Transmission Date: 20230721
  Serious: Yes (Other)
  Sender: FDA-Public Use
  Company Number: PHEH2019US008262

PATIENT
  Sex: Female

DRUGS (1)
  1. TASIGNA [Suspect]
     Active Substance: NILOTINIB
     Indication: Chronic myeloid leukaemia
     Dosage: 1 DF, BID
     Route: 048
     Dates: start: 201504, end: 201807

REACTIONS (46)
  - Mitral valve incompetence [Unknown]
  - Aortic valve incompetence [Unknown]
  - Tricuspid valve incompetence [Unknown]
  - Cataract [Unknown]
  - Deafness [Unknown]
  - Arterial stenosis [Unknown]
  - Embolism arterial [Unknown]
  - Blood loss anaemia [Unknown]
  - Diverticulitis [Unknown]
  - Anuria [Unknown]
  - Thrombocytosis [Unknown]
  - Peripheral arterial occlusive disease [Unknown]
  - Peripheral venous disease [Unknown]
  - Carotid artery disease [Unknown]
  - Ocular ischaemic syndrome [Unknown]
  - Blindness [Unknown]
  - Chronic obstructive pulmonary disease [Unknown]
  - Angina pectoris [Unknown]
  - Aortic arteriosclerosis [Unknown]
  - Leukocytosis [Unknown]
  - Aortic thrombosis [Unknown]
  - Arteriosclerosis [Unknown]
  - Hypothyroidism [Unknown]
  - Coronary artery disease [Unknown]
  - Arterial occlusive disease [Unknown]
  - Splenomegaly [Unknown]
  - Abdominal pain lower [Unknown]
  - Osteoporosis [Unknown]
  - Aortic aneurysm [Unknown]
  - Malnutrition [Unknown]
  - Oliguria [Unknown]
  - Injury [Unknown]
  - Emotional distress [Unknown]
  - Abdominal pain upper [Unknown]
  - Intermittent claudication [Unknown]
  - Urinary tract infection [Unknown]
  - Hypertension [Unknown]
  - Hyperlipidaemia [Unknown]
  - Anaemia [Unknown]
  - Weight decreased [Unknown]
  - Back pain [Unknown]
  - Contusion [Unknown]
  - Chest pain [Unknown]
  - Dyspnoea [Unknown]
  - Anxiety [Unknown]
  - Pain [Unknown]
